FAERS Safety Report 16752734 (Version 1)
Quarter: 2019Q3

REPORT INFORMATION
  Report Type: Spontaneous
  Country: PL (occurrence: PL)
  Receive Date: 20190828
  Receipt Date: 20190828
  Transmission Date: 20191005
  Serious: Yes (Death, Other)
  Sender: FDA-Public Use
  Company Number: PL-SA-2019SA200500

PATIENT
  Age: 65 Year
  Sex: Female

DRUGS (19)
  1. TRAMADOL HYDROCHLORIDE. [Suspect]
     Active Substance: TRAMADOL HYDROCHLORIDE
     Indication: ANALGESIC THERAPY
     Dosage: 75 MG, Q8H
     Route: 048
  2. TAMOXIFEN [Suspect]
     Active Substance: TAMOXIFEN
     Indication: BREAST CANCER METASTATIC
     Dosage: 20 MG, QD
     Route: 048
  3. EXOPERIN [Concomitant]
     Indication: CANCER PAIN
     Dosage: UNK UNK, QD
     Route: 065
  4. MORPHINE SULFATE. [Suspect]
     Active Substance: MORPHINE SULFATE
     Indication: DYSPNOEA
     Dosage: 30 MG, QD
     Route: 065
  5. FENTANYL. [Concomitant]
     Active Substance: FENTANYL
     Indication: BREAKTHROUGH PAIN
     Dosage: 100 UG NEBULISER SOLUTION
     Route: 045
  6. OXYCODONE HYDROCHLORIDE. [Suspect]
     Active Substance: OXYCODONE HYDROCHLORIDE
     Indication: PAIN MANAGEMENT
     Dosage: 10 MG, Q12H
     Route: 065
  7. NALOXONE HYDROCHLORIDE;OXYCODONE HYDROCHLORIDE [Suspect]
     Active Substance: NALOXONE HYDROCHLORIDE\OXYCODONE HYDROCHLORIDE
     Indication: PAIN MANAGEMENT
     Dosage: UNK UNK, Q12H
     Route: 065
  8. NALOXONE [Concomitant]
     Active Substance: NALOXONE
     Indication: CANCER PAIN
     Route: 065
  9. HYDROXYZINE [Suspect]
     Active Substance: HYDROXYZINE HYDROCHLORIDE
     Indication: ANXIETY
     Dosage: 25 MG, QD
     Route: 065
  10. MORPHINE SULFATE. [Suspect]
     Active Substance: MORPHINE SULFATE
     Indication: PAIN MANAGEMENT
     Dosage: 10 MG 2-3 TIMES DAILY
  11. PAMIDRONIC ACID [Concomitant]
     Active Substance: PAMIDRONIC ACID
     Indication: BREAST CANCER METASTATIC
     Dosage: 90 MG, EVERY 28 DAYS
     Route: 042
  12. FENTANYL. [Concomitant]
     Active Substance: FENTANYL
     Dosage: UNK
  13. ZOLPIDEM TARTRATE. [Suspect]
     Active Substance: ZOLPIDEM TARTRATE
     Indication: PAIN MANAGEMENT
     Dosage: HOME VISIT EVERY 10?14 DAYS
     Route: 065
  14. PARACETAMOL [Suspect]
     Active Substance: ACETAMINOPHEN
     Indication: ANALGESIC THERAPY
     Dosage: 650 MG DOSAGE EVERY EIGHT HOURS
     Route: 065
  15. MIDAZOLAM [Suspect]
     Active Substance: MIDAZOLAM HYDROCHLORIDE
     Indication: ANXIETY
     Dosage: 7.5 MG
     Route: 048
  16. ZOLEDRONIC ACID [Suspect]
     Active Substance: ZOLEDRONIC ACID
     Indication: BREAST CANCER METASTATIC
     Dosage: 4 MG, EVERY 28 DAYS
     Route: 042
  17. TRAMADOL HYDROCHLORIDE. [Suspect]
     Active Substance: TRAMADOL HYDROCHLORIDE
     Indication: PAIN MANAGEMENT
  18. ENOXAPARIN SODIUM. [Suspect]
     Active Substance: ENOXAPARIN SODIUM
     Dosage: 20 MG, QD
     Route: 065
  19. MORPHINE [Concomitant]
     Active Substance: MORPHINE
     Dosage: 60 MG, QD 30 MG, BID
     Route: 065

REACTIONS (10)
  - Sedation [Fatal]
  - General physical health deterioration [Fatal]
  - Metastases to bone [Fatal]
  - Constipation [Fatal]
  - Breast cancer metastatic [Fatal]
  - Breakthrough pain [Fatal]
  - Disturbance in attention [Fatal]
  - Malignant neoplasm progression [Fatal]
  - Anxiety [Fatal]
  - Asthenia [Fatal]
